FAERS Safety Report 11883596 (Version 1)
Quarter: 2016Q1

REPORT INFORMATION
  Report Type: Spontaneous
  Country: US (occurrence: US)
  Receive Date: 20160101
  Receipt Date: 20160101
  Transmission Date: 20160526
  Serious: Yes (Death, Hospitalization, Other)
  Sender: FDA-Public Use
  Company Number: US-CIPLA LTD.-2015US09822

PATIENT

DRUGS (3)
  1. GEMCITABINE [Suspect]
     Active Substance: GEMCITABINE\GEMCITABINE HYDROCHLORIDE
     Indication: PANCREATIC CARCINOMA
     Dosage: 200MG/M2/WEEK BEFORE DOSE ESCALATION
     Route: 065
  2. CETUXIMAB [Suspect]
     Active Substance: CETUXIMAB
     Indication: PANCREATIC CARCINOMA
     Dosage: 400 MG/M2, LOADING DOSE
  3. CETUXIMAB [Suspect]
     Active Substance: CETUXIMAB
     Dosage: 250 MG/M2, WEEKLY MAINTENANCE DOSE

REACTIONS (9)
  - Vomiting [Unknown]
  - Platelet count decreased [Unknown]
  - Constipation [Unknown]
  - Ileus [Unknown]
  - Pneumonia aspiration [Fatal]
  - Rash [Unknown]
  - Nausea [Unknown]
  - Abdominal pain [Unknown]
  - Infection [Unknown]
